FAERS Safety Report 16136687 (Version 1)
Quarter: 2019Q1

REPORT INFORMATION
  Report Type: Report from Study
  Country: BR (occurrence: BR)
  Receive Date: 20190329
  Receipt Date: 20190329
  Transmission Date: 20190418
  Serious: Yes (Disabling, Other)
  Sender: FDA-Public Use
  Company Number: PHHY2019BR068281

PATIENT
  Age: 52 Year
  Sex: Male

DRUGS (2)
  1. COSENTYX [Suspect]
     Active Substance: SECUKINUMAB
     Dosage: UNK
     Route: 065
     Dates: start: 20190225
  2. COSENTYX [Suspect]
     Active Substance: SECUKINUMAB
     Indication: PRODUCT USED FOR UNKNOWN INDICATION
     Dosage: UNK
     Route: 065
     Dates: start: 20181127

REACTIONS (7)
  - Ear infection [Not Recovered/Not Resolved]
  - Pyrexia [Unknown]
  - Sinusitis [Recovering/Resolving]
  - Influenza [Not Recovered/Not Resolved]
  - Rhinitis [Recovering/Resolving]
  - Immunosuppression [Unknown]
  - Ear discomfort [Unknown]

NARRATIVE: CASE EVENT DATE: 20181127
